FAERS Safety Report 22265793 (Version 2)
Quarter: 2023Q2

REPORT INFORMATION
  Report Type: Report from Study
  Country: CA (occurrence: CA)
  Receive Date: 20230428
  Receipt Date: 20230606
  Transmission Date: 20230722
  Serious: Yes (Other)
  Sender: FDA-Public Use
  Company Number: CA-AstraZeneca-2023A066205

PATIENT
  Sex: Female

DRUGS (2)
  1. ENHERTU [Suspect]
     Active Substance: FAM-TRASTUZUMAB DERUXTECAN-NXKI
     Indication: HER2 positive breast cancer
     Dosage: 489 MG, ONCE EVERY 3 WK
     Route: 042
     Dates: start: 20210930
  2. ENHERTU [Suspect]
     Active Substance: FAM-TRASTUZUMAB DERUXTECAN-NXKI
     Dosage: 425 MG, ONCE EVERY 3 WK
     Route: 042
     Dates: start: 20210930

REACTIONS (5)
  - Brain injury [Unknown]
  - Radiation necrosis [Unknown]
  - Dizziness [Unknown]
  - Balance disorder [Unknown]
  - Off label use [Unknown]
